FAERS Safety Report 10854179 (Version 1)
Quarter: 2015Q1

REPORT INFORMATION
  Report Type: Spontaneous
  Country: JP (occurrence: JP)
  Receive Date: 20150223
  Receipt Date: 20150223
  Transmission Date: 20150721
  Serious: Yes (Disabling, Other)
  Sender: FDA-Public Use
  Company Number: JP-009507513-1502JPN009486

PATIENT
  Age: 94 Year
  Sex: Female

DRUGS (1)
  1. FOSAMAX [Suspect]
     Active Substance: ALENDRONATE SODIUM
     Dosage: DOSAGE UNKNOWN,QW
     Route: 048

REACTIONS (2)
  - Gait disturbance [Unknown]
  - Femur fracture [Unknown]
